FAERS Safety Report 19871358 (Version 1)
Quarter: 2021Q3

REPORT INFORMATION
  Report Type: Spontaneous
  Country: AT (occurrence: GB)
  Receive Date: 20210923
  Receipt Date: 20210923
  Transmission Date: 20211014
  Serious: Yes (Other)
  Sender: FDA-Public Use
  Company Number: AT-AUROBINDO-AUR-APL-2021-039325

PATIENT
  Age: 43 Year
  Sex: Female

DRUGS (2)
  1. CODEINE [Suspect]
     Active Substance: CODEINE
     Indication: NECK PAIN
     Dosage: 4 MILLIGRAM, ONCE A DAY
     Route: 065
  2. TRAMADOL. [Suspect]
     Active Substance: TRAMADOL
     Indication: NECK PAIN
     Dosage: UNK UNK, PRN
     Route: 065

REACTIONS (5)
  - Somnolence [Unknown]
  - Laziness [Unknown]
  - Drug dependence [Unknown]
  - Pruritus [Unknown]
  - Hyperhidrosis [Unknown]
